FAERS Safety Report 17928082 (Version 2)
Quarter: 2020Q3

REPORT INFORMATION
  Report Type: Spontaneous
  Country: US (occurrence: US)
  Receive Date: 20200622
  Receipt Date: 20200910
  Transmission Date: 20201103
  Serious: No
  Sender: FDA-Public Use
  Company Number: US-ROCHE-2584825

PATIENT
  Age: 46 Year
  Sex: Female

DRUGS (1)
  1. HERCEPTIN HYLECTA [Suspect]
     Active Substance: HYALURONIDASE-OYSK\TRASTUZUMAB
     Indication: PRODUCT USED FOR UNKNOWN INDICATION
     Dosage: YES
     Route: 058

REACTIONS (2)
  - Incorrect route of product administration [Unknown]
  - No adverse event [Unknown]
